FAERS Safety Report 6093997-8 (Version None)
Quarter: 2009Q1

REPORT INFORMATION
  Report Type: 
  Country: None (occurrence: None)
  Receive Date: 20090226
  Receipt Date: 20090218
  Transmission Date: 20090719
  Serious: Yes (Hospitalization)
  Sender: FDA-Public Use
  Company Number: B0560157A

PATIENT
  Age: 51 Year
  Sex: Female

DRUGS (8)
  1. DEROXAT [Suspect]
     Indication: DEPRESSION
     Route: 048
     Dates: start: 20060101, end: 20080505
  2. LYRICA [Suspect]
     Indication: DRUG USE FOR UNKNOWN INDICATION
     Route: 048
     Dates: start: 20060101, end: 20080509
  3. XANAX [Suspect]
     Indication: DRUG USE FOR UNKNOWN INDICATION
     Route: 048
     Dates: start: 20060101, end: 20080509
  4. CYCLADOL [Suspect]
     Indication: DRUG USE FOR UNKNOWN INDICATION
     Route: 065
     Dates: start: 20060101, end: 20080509
  5. COAPROVEL [Suspect]
     Indication: HYPERTENSION
     Route: 048
     Dates: start: 20060101, end: 20080509
  6. STILNOX [Suspect]
     Indication: INSOMNIA
     Route: 048
     Dates: start: 20060101, end: 20080509
  7. TRAMADOL HCL [Suspect]
     Indication: DRUG USE FOR UNKNOWN INDICATION
     Route: 048
     Dates: start: 20060101, end: 20080509
  8. NEXIUM [Suspect]
     Indication: DRUG USE FOR UNKNOWN INDICATION
     Route: 048
     Dates: start: 20060101, end: 20080509

REACTIONS (5)
  - DERMATITIS BULLOUS [None]
  - NIKOLSKY'S SIGN [None]
  - PRURITUS [None]
  - RASH MACULO-PAPULAR [None]
  - SKIN NECROSIS [None]
